FAERS Safety Report 4390049-X (Version None)
Quarter: 2004Q2

REPORT INFORMATION
  Report Type: 
  Country: None (occurrence: None)
  Receive Date: 20040630
  Receipt Date: 20040614
  Transmission Date: 20050107
  Serious: Yes (Hospitalization)
  Sender: FDA-Public Use
  Company Number: 236428

PATIENT
  Age: 73 Year
  Sex: Male
  Weight: 96 kg

DRUGS (5)
  1. NOVOLIN N [Suspect]
  2. CHLORTHALIDONE [Concomitant]
  3. PURAN T4 (LEVOTHYROXINE SODIUM) [Concomitant]
  4. METHYLDOPA [Concomitant]
  5. METFORMIN [Concomitant]

REACTIONS (3)
  - ASTHENIA [None]
  - COLD SWEAT [None]
  - DELIRIUM [None]
